FAERS Safety Report 16478227 (Version 2)
Quarter: 2019Q3

REPORT INFORMATION
  Report Type: Spontaneous
  Country: IT (occurrence: IT)
  Receive Date: 20190626
  Receipt Date: 20190702
  Transmission Date: 20191004
  Serious: Yes (Death, Other)
  Sender: FDA-Public Use
  Company Number: IT-PFIZER INC-2019266565

PATIENT
  Age: 69 Year
  Sex: Female

DRUGS (2)
  1. CEFTOLOZANE SULFATE/TAZOBACTAM SODIUM [Suspect]
     Active Substance: CEFTOLOZANE SULFATE\TAZOBACTAM SODIUM
     Indication: SEPTIC SHOCK
     Dosage: UNK
  2. METRONIDAZOLE. [Suspect]
     Active Substance: METRONIDAZOLE
     Indication: SEPTIC SHOCK
     Dosage: UNK

REACTIONS (4)
  - Product use in unapproved indication [Unknown]
  - Staphylococcal infection [Unknown]
  - Death [Fatal]
  - Off label use [Unknown]
